FAERS Safety Report 7019040-1 (Version None)
Quarter: 2010Q3

REPORT INFORMATION
  Report Type: 
  Country: None (occurrence: None)
  Receive Date: 20100928
  Receipt Date: 20100924
  Transmission Date: 20110219
  Serious: Yes (Hospitalization)
  Sender: FDA-Public Use
  Company Number: A0836514A

PATIENT
  Age: 61 Year
  Sex: Female
  Weight: 126.4 kg

DRUGS (23)
  1. AVANDIA [Suspect]
     Indication: DIABETES MELLITUS
     Dosage: 4MG PER DAY
     Route: 048
     Dates: start: 20050420, end: 20070301
  2. STRATTERA [Concomitant]
  3. ESTRADIOL [Concomitant]
  4. ZETIA [Concomitant]
  5. ACTOS [Concomitant]
  6. MICARDIS [Concomitant]
  7. PROMETRIUM [Concomitant]
  8. NORVASC [Concomitant]
  9. CYMBALTA [Concomitant]
  10. PRILOSEC [Concomitant]
  11. OXYCONTIN [Concomitant]
  12. ADVAIR DISKUS 100/50 [Concomitant]
  13. INSULIN [Concomitant]
  14. METFORMIN [Concomitant]
  15. ZOVIRAX [Concomitant]
  16. LUNESTA [Concomitant]
  17. NEURONTIN [Concomitant]
  18. PROZAC [Concomitant]
  19. TOPAMAX [Concomitant]
  20. IMIPRAMINE [Concomitant]
  21. DIPENTUM [Concomitant]
  22. INDOMETHACIN [Concomitant]
  23. CRESTOR [Concomitant]

REACTIONS (3)
  - ATRIAL FIBRILLATION [None]
  - CARDIAC FAILURE CONGESTIVE [None]
  - CARDIOMYOPATHY [None]
